FAERS Safety Report 19819959 (Version 2)
Quarter: 2021Q3

REPORT INFORMATION
  Report Type: Report from Study
  Country: JP (occurrence: JP)
  Receive Date: 20210913
  Receipt Date: 20210929
  Transmission Date: 20211014
  Serious: Yes (Life-Threatening)
  Sender: FDA-Public Use
  Company Number: JP-CELLTRION INC.-2021JP012219

PATIENT

DRUGS (18)
  1. TEGAFUR/GIMERACIL/OTERACIL POTASSIUM COMBINED DRUG [Suspect]
     Active Substance: GIMERACIL\OTERACIL\TEGAFUR
     Dosage: 120 MILLIGRAM, QD
     Route: 048
     Dates: start: 20210407, end: 20210427
  2. TEGAFUR/GIMERACIL/OTERACIL POTASSIUM COMBINED DRUG [Suspect]
     Active Substance: GIMERACIL\OTERACIL\TEGAFUR
     Dosage: 120 MILLIGRAM, QD
     Route: 048
     Dates: start: 20210428, end: 20210518
  3. LOXOPROFEN SODIUM HYDRATE [Concomitant]
     Active Substance: LOXOPROFEN SODIUM DIHYDRATE
  4. CT?P6 [Suspect]
     Active Substance: INVESTIGATIONAL BIOSIMILARS
     Dosage: UNK
     Route: 041
     Dates: start: 20210714, end: 20210714
  5. ALOXI [Concomitant]
     Active Substance: PALONOSETRON HYDROCHLORIDE
     Dosage: UNK
     Dates: start: 20210317
  6. CALONAL [Concomitant]
     Active Substance: ACETAMINOPHEN
  7. DEXART [Concomitant]
     Active Substance: DEXAMETHASONE SODIUM PHOSPHATE
     Indication: PROPHYLAXIS OF NAUSEA AND VOMITING
     Dosage: UNK
     Dates: start: 20210317
  8. APREPITANT. [Concomitant]
     Active Substance: APREPITANT
     Dosage: UNK
     Dates: start: 20210317
  9. CT?P6 [Suspect]
     Active Substance: INVESTIGATIONAL BIOSIMILARS
     Dosage: 320 MILLIGRAM, QD
     Route: 041
     Dates: start: 20210428, end: 20210428
  10. PHOSRIBBON [Concomitant]
     Active Substance: SODIUM PHOSPHATE, DIBASIC\SODIUM PHOSPHATE, MONOBASIC
     Indication: HYPOPHOSPHATAEMIA
     Dosage: UNK
     Dates: start: 20210318
  11. CT?P6 [Suspect]
     Active Substance: INVESTIGATIONAL BIOSIMILARS
     Indication: HER2 POSITIVE GASTRIC CANCER
     Dosage: 437 MG, QD
     Route: 041
     Dates: start: 20210317, end: 20210317
  12. DENOTAS [Concomitant]
     Active Substance: CALCIUM CARBONATE\CHOLECALCIFEROL\MAGNESIUM CARBONATE
     Indication: METASTASES TO BONE
  13. CT?P6 [Suspect]
     Active Substance: INVESTIGATIONAL BIOSIMILARS
     Dosage: 320 MILLIGRAM, QD
     Route: 041
     Dates: start: 20210407, end: 20210407
  14. CT?P6 [Suspect]
     Active Substance: INVESTIGATIONAL BIOSIMILARS
     Dosage: 320 MILLIGRAM, QD
     Route: 041
     Dates: start: 20210602, end: 20210602
  15. TEGAFUR/GIMERACIL/OTERACIL POTASSIUM COMBINED DRUG [Suspect]
     Active Substance: GIMERACIL\OTERACIL\TEGAFUR
     Indication: HER2 POSITIVE GASTRIC CANCER
     Dosage: 120 MG, QD
     Route: 048
     Dates: start: 20210317, end: 20210406
  16. TEGAFUR/GIMERACIL/OTERACIL POTASSIUM COMBINED DRUG [Suspect]
     Active Substance: GIMERACIL\OTERACIL\TEGAFUR
     Dosage: UNK
     Route: 048
     Dates: start: 20210519
  17. OXALIPLATIN. [Concomitant]
     Active Substance: OXALIPLATIN
     Indication: HER2 POSITIVE GASTRIC CANCER
     Dosage: UNK
     Dates: start: 20210317, end: 20210519
  18. CAPECITABINE. [Concomitant]
     Active Substance: CAPECITABINE
     Dosage: UNK
     Dates: start: 20210714, end: 20210803

REACTIONS (3)
  - Off label use [Unknown]
  - Dacryostenosis acquired [Unknown]
  - Underdose [Unknown]

NARRATIVE: CASE EVENT DATE: 20210519
